FAERS Safety Report 9127088 (Version 1)
Quarter: 2013Q1

REPORT INFORMATION
  Report Type: Report from Study
  Country: BR (occurrence: BR)
  Receive Date: 20130228
  Receipt Date: 20130228
  Transmission Date: 20140127
  Serious: Yes (Death, Hospitalization, Other)
  Sender: FDA-Public Use
  Company Number: BR-BAYER-2013-020875

PATIENT
  Age: 59 Year
  Sex: Male

DRUGS (3)
  1. NEXAVAR [Suspect]
     Indication: HEPATIC CANCER
     Dosage: 1 DF, BID
     Route: 048
     Dates: start: 20120210, end: 20120310
  2. NEXAVAR [Suspect]
     Indication: HEPATIC CANCER
     Dosage: 400 MG, BID (2 TABLETS IN THE MORNING AND 2 TABLETS AT NIGHT)
     Dates: start: 20120311, end: 201207
  3. UNKNOWN DRUGS [Concomitant]

REACTIONS (6)
  - Respiratory failure [Fatal]
  - Encephalopathy [Not Recovered/Not Resolved]
  - Metastasis [Not Recovered/Not Resolved]
  - Ascites [Not Recovered/Not Resolved]
  - Abdominal distension [Not Recovered/Not Resolved]
  - Drug ineffective [None]
